FAERS Safety Report 6866863-5 (Version None)
Quarter: 2010Q3

REPORT INFORMATION
  Report Type: 
  Country: None (occurrence: None)
  Receive Date: 20100722
  Receipt Date: 20100716
  Transmission Date: 20110219
  Serious: Yes (Death)
  Sender: FDA-Public Use
  Company Number: JP-BAYER-201013015BYL

PATIENT
  Age: 65 Year
  Sex: Female
  Weight: 40 kg

DRUGS (5)
  1. NEXAVAR [Suspect]
     Indication: HEPATIC NEOPLASM MALIGNANT
     Dosage: UNIT DOSE: 200 MG
     Route: 048
     Dates: start: 20081108, end: 20081114
  2. URSO 250 [Suspect]
     Indication: PRODUCT USED FOR UNKNOWN INDICATION
     Dosage: UNIT DOSE: 100 MG
     Route: 048
     Dates: start: 20081108, end: 20090106
  3. GLYCYRON [Suspect]
     Indication: PRODUCT USED FOR UNKNOWN INDICATION
     Dosage: UNIT DOSE: 25 MG
     Route: 048
     Dates: start: 20081108, end: 20090106
  4. LIVACT [Suspect]
     Indication: PRODUCT USED FOR UNKNOWN INDICATION
     Dosage: UNIT DOSE: 4.15 G
     Route: 048
     Dates: start: 20081108, end: 20090106
  5. CISPLATIN [Concomitant]
     Indication: HEPATIC NEOPLASM MALIGNANT
     Route: 013
     Dates: start: 20080501, end: 20080801

REACTIONS (1)
  - LIVER DISORDER [None]
